FAERS Safety Report 10444760 (Version 2)
Quarter: 2015Q1

REPORT INFORMATION
  Report Type: Spontaneous
  Country: US (occurrence: US)
  Receive Date: 20140910
  Receipt Date: 20150123
  Transmission Date: 20150720
  Serious: Yes (Death, Other)
  Sender: FDA-Public Use
  Company Number: US-MERCK-1409USA004468

PATIENT
  Sex: Female
  Weight: 86.62 kg

DRUGS (1)
  1. JANUVIA [Suspect]
     Active Substance: SITAGLIPTIN PHOSPHATE
     Indication: TYPE 2 DIABETES MELLITUS
     Dosage: 100 MG, QD
     Route: 048
     Dates: start: 20111108, end: 20130902

REACTIONS (15)
  - Renal mass [Unknown]
  - Osteoporosis [Unknown]
  - Hypertension [Unknown]
  - Transient ischaemic attack [Unknown]
  - Oncologic complication [Fatal]
  - Pancreatic carcinoma metastatic [Fatal]
  - Chronic obstructive pulmonary disease [Not Recovered/Not Resolved]
  - Insulin-requiring type 2 diabetes mellitus [Unknown]
  - Dysphagia [Unknown]
  - Cardiac pacemaker insertion [Unknown]
  - Dyspepsia [Unknown]
  - Metastases to liver [Unknown]
  - Mitral valve incompetence [Unknown]
  - Vertigo [Unknown]
  - Cholelithiasis [Unknown]

NARRATIVE: CASE EVENT DATE: 20120208
